FAERS Safety Report 18375552 (Version 4)
Quarter: 2021Q1

REPORT INFORMATION
  Report Type: Spontaneous
  Country: RO (occurrence: RO)
  Receive Date: 20201013
  Receipt Date: 20210331
  Transmission Date: 20210419
  Serious: Yes (Hospitalization, Other)
  Sender: FDA-Public Use
  Company Number: RO-CELLTRION INC.-2020RO028512

PATIENT

DRUGS (1)
  1. INFLIXIMAB (UNKNOWN) [Suspect]
     Active Substance: INFLIXIMAB
     Indication: COLITIS ULCERATIVE
     Dosage: 5 MG/KG INTRAVENOUS PERFUSION EVERY 8 WEEKS
     Route: 042
     Dates: start: 201802

REACTIONS (7)
  - Tooth infection [Recovering/Resolving]
  - Abscess bacterial [Recovering/Resolving]
  - Salivary gland fistula [Recovering/Resolving]
  - Abscess of salivary gland [Recovering/Resolving]
  - Klebsiella infection [Recovering/Resolving]
  - Ludwig angina [Recovering/Resolving]
  - Fistula [Recovering/Resolving]
